FAERS Safety Report 7023419-1 (Version None)
Quarter: 2010Q3

REPORT INFORMATION
  Report Type: 
  Country: None (occurrence: None)
  Receive Date: 20100930
  Receipt Date: 20100923
  Transmission Date: 20110219
  Serious: Yes (Death, Hospitalization, Other)
  Sender: FDA-Public Use
  Company Number: US-AMGEN-QUU436545

PATIENT
  Sex: Male
  Weight: 90.7 kg

DRUGS (6)
  1. NPLATE [Suspect]
     Indication: THROMBOCYTOPENIA
     Route: 058
     Dates: start: 20091231, end: 20100415
  2. INSULIN [Concomitant]
     Route: 058
  3. INDERAL [Concomitant]
     Route: 048
  4. OMEPRAZOLE [Concomitant]
     Route: 048
  5. LEVEMIR [Concomitant]
     Route: 058
  6. SPIRONOLACTONE [Concomitant]
     Route: 048

REACTIONS (5)
  - CARDIAC FAILURE CONGESTIVE [None]
  - DRUG INEFFECTIVE [None]
  - HEPATIC CIRRHOSIS [None]
  - MOUTH HAEMORRHAGE [None]
  - PLEURAL EFFUSION [None]
